FAERS Safety Report 18884293 (Version 1)
Quarter: 2021Q1

REPORT INFORMATION
  Report Type: Spontaneous
  Country: JP (occurrence: JP)
  Receive Date: 20210211
  Receipt Date: 20210211
  Transmission Date: 20210420
  Serious: Yes (Hospitalization)
  Sender: FDA-Public Use
  Company Number: JP-SA-2021SA039781

PATIENT
  Age: 78 Year
  Sex: Male

DRUGS (4)
  1. LYXUMIA [Suspect]
     Active Substance: LIXISENATIDE
     Indication: PRODUCT USED FOR UNKNOWN INDICATION
     Dosage: 20 UG
     Route: 058
  2. LYXUMIA [Suspect]
     Active Substance: LIXISENATIDE
     Dosage: RESUMED AT 20 UG
     Route: 058
  3. LANTUS SOLOSTAR [Suspect]
     Active Substance: INSULIN GLARGINE
     Indication: PRODUCT USED FOR UNKNOWN INDICATION
     Dosage: 20 UNITS
     Route: 058
  4. LANTUS SOLOSTAR [Suspect]
     Active Substance: INSULIN GLARGINE
     Dosage: 15 UNITS
     Route: 058

REACTIONS (3)
  - Blood glucose decreased [Unknown]
  - Physical deconditioning [Recovering/Resolving]
  - Decreased appetite [Unknown]
